FAERS Safety Report 14774933 (Version 2)
Quarter: 2018Q2

REPORT INFORMATION
  Report Type: Report from Study
  Country: TW (occurrence: TW)
  Receive Date: 20180418
  Receipt Date: 20180507
  Transmission Date: 20180711
  Serious: Yes (Death, Life-Threatening, Hospitalization, Disabling)
  Sender: FDA-Public Use
  Company Number: TW-ACTELION-A-NJ2018-170929

PATIENT
  Age: 80 Year
  Sex: Female

DRUGS (1)
  1. VENTAVIS [Suspect]
     Active Substance: ILOPROST
     Indication: PULMONARY ARTERIAL HYPERTENSION
     Dosage: 4 AMP/DAY
     Route: 055
     Dates: start: 20140711, end: 20180412

REACTIONS (6)
  - Atrial fibrillation [Fatal]
  - Cerebral infarction [Fatal]
  - Sepsis [Fatal]
  - Cardiopulmonary failure [Fatal]
  - Mobility decreased [Fatal]
  - Altered state of consciousness [Fatal]

NARRATIVE: CASE EVENT DATE: 20180326
